FAERS Safety Report 24621082 (Version 4)
Quarter: 2025Q2

REPORT INFORMATION
  Report Type: Other
  Country: US (occurrence: US)
  Receive Date: 20241114
  Receipt Date: 20250515
  Transmission Date: 20250717
  Serious: No
  Sender: TRAVERE THERAPEUTICS
  Company Number: US-TRAVERE-2024TVT01141

PATIENT
  Sex: Female

DRUGS (2)
  1. FILSPARI [Suspect]
     Active Substance: SPARSENTAN
     Indication: IgA nephropathy
     Route: 048
     Dates: start: 20241015
  2. FILSPARI [Suspect]
     Active Substance: SPARSENTAN
     Route: 048
     Dates: start: 20241029

REACTIONS (9)
  - Fatigue [None]
  - Constipation [Unknown]
  - Blood pressure decreased [None]
  - Dizziness [None]
  - Hypertension [Unknown]
  - Heart rate increased [Unknown]
  - Liver function test abnormal [Unknown]
  - Feeling abnormal [Unknown]
  - Gout [Unknown]
